FAERS Safety Report 7748747-3 (Version None)
Quarter: 2011Q3

REPORT INFORMATION
  Report Type: 
  Country: None (occurrence: None)
  Receive Date: 20110914
  Receipt Date: 20110907
  Transmission Date: 20111222
  Serious: No
  Sender: FDA-Public Use
  Company Number: US-BIOGENIDEC-2011BI034609

PATIENT
  Age: 57 Year
  Sex: Female

DRUGS (4)
  1. OXYBUTYNIN [Concomitant]
     Indication: URINARY INCONTINENCE
  2. AVONEX [Suspect]
     Indication: MULTIPLE SCLEROSIS
     Route: 030
     Dates: start: 20110907
  3. AMITRIPTYLINE HCL [Concomitant]
     Indication: AFFECT LABILITY
  4. AMPYRA [Concomitant]
     Indication: GAIT DISTURBANCE

REACTIONS (3)
  - FATIGUE [None]
  - HYPOPHAGIA [None]
  - PAIN [None]
